FAERS Safety Report 9917013 (Version 1)
Quarter: 2014Q1

REPORT INFORMATION
  Report Type: Spontaneous
  Country: US (occurrence: US)
  Receive Date: 20140221
  Receipt Date: 20140221
  Transmission Date: 20141002
  Serious: No
  Sender: FDA-Public Use
  Company Number: US-BAYER-2014-026630

PATIENT
  Sex: 0

DRUGS (1)
  1. MAGNEVIST [Suspect]
     Dosage: UNK UNK, ONCE

REACTIONS (1)
  - Urticaria [None]
